FAERS Safety Report 7564357-5 (Version None)
Quarter: 2011Q2

REPORT INFORMATION
  Report Type: 
  Country: None (occurrence: None)
  Receive Date: 20110622
  Receipt Date: 20110609
  Transmission Date: 20111010
  Serious: Yes (Hospitalization)
  Sender: FDA-Public Use
  Company Number: PHHY2011GR50231

PATIENT
  Age: 67 Year
  Sex: Male

DRUGS (3)
  1. ARICEPT [Suspect]
     Indication: MEMORY IMPAIRMENT
     Dosage: 10 MG, QD
     Dates: start: 20110604, end: 20110601
  2. EXELON [Suspect]
     Indication: MEMORY IMPAIRMENT
     Dosage: 9.5 MG/24 HRS
     Route: 062
     Dates: end: 20110603
  3. RISPERDAL [Concomitant]
     Dosage: 1 MG, QD
     Route: 048

REACTIONS (5)
  - DEHYDRATION [None]
  - HAEMATEMESIS [None]
  - CONDITION AGGRAVATED [None]
  - MYOCARDIAL INFARCTION [None]
  - SKIN LESION [None]
